FAERS Safety Report 5808015-3 (Version None)
Quarter: 2008Q3

REPORT INFORMATION
  Report Type: 
  Country: None (occurrence: None)
  Receive Date: 20080708
  Receipt Date: 20080702
  Transmission Date: 20090109
  Serious: Yes (Life-Threatening, Hospitalization)
  Sender: FDA-Public Use
  Company Number: 2008-02417

PATIENT
  Age: 77 Year
  Sex: Male
  Weight: 79.6 kg

DRUGS (1)
  1. VELCADE [Suspect]
     Indication: LYMPHOMA
     Dosage: 2.8 MG, INTRAVENOUS
     Route: 042
     Dates: start: 20080226

REACTIONS (2)
  - DYSPNOEA [None]
  - RESPIRATORY FAILURE [None]
